FAERS Safety Report 4330398-4 (Version None)
Quarter: 2004Q2

REPORT INFORMATION
  Report Type: 
  Country: None (occurrence: None)
  Receive Date: 20040402
  Receipt Date: 20040203
  Transmission Date: 20050107
  Serious: Yes (Death, Life-Threatening)
  Sender: FDA-Public Use
  Company Number: 200410462FR

PATIENT
  Age: 22 Year
  Sex: Male

DRUGS (13)
  1. CERUBIDINE [Suspect]
     Indication: ACUTE LYMPHOCYTIC LEUKAEMIA
     Route: 042
     Dates: start: 20031227, end: 20031229
  2. METHOTREXATE [Suspect]
     Indication: ACUTE LYMPHOCYTIC LEUKAEMIA
     Route: 037
     Dates: start: 20031231, end: 20031231
  3. ARACYTINE [Suspect]
     Indication: ACUTE LYMPHOCYTIC LEUKAEMIA
     Route: 037
     Dates: start: 20031231, end: 20031231
  4. ENDOXAN [Suspect]
     Indication: ACUTE LYMPHOCYTIC LEUKAEMIA
     Route: 042
     Dates: start: 20031227, end: 20031227
  5. ONCOVIN [Suspect]
     Indication: ACUTE LYMPHOCYTIC LEUKAEMIA
     Route: 042
     Dates: start: 20031227, end: 20031227
  6. SOLU-MEDROL [Concomitant]
     Route: 042
     Dates: start: 20031220
  7. PRIMPERAN INJ [Concomitant]
     Dates: start: 20031220
  8. VISCERALGINE FORTE TABLETS [Concomitant]
     Dates: start: 20031221
  9. ZYLORIC [Concomitant]
     Dates: start: 20031221
  10. ROCEPHIN [Concomitant]
     Dates: start: 20031220
  11. CIPROFLOXACIN HCL [Concomitant]
     Dates: start: 20031220
  12. ZOPHREN [Concomitant]
     Dates: start: 20031220
  13. MOPRAL [Concomitant]
     Dates: start: 20031224, end: 20031226

REACTIONS (4)
  - BONE MARROW DEPRESSION [None]
  - CREATININE RENAL CLEARANCE DECREASED [None]
  - SEPTIC SHOCK [None]
  - STOMATITIS [None]
